FAERS Safety Report 5159573-6 (Version None)
Quarter: 2006Q4

REPORT INFORMATION
  Report Type: 
  Country: None (occurrence: None)
  Receive Date: 20061129
  Receipt Date: 20061115
  Transmission Date: 20070319
  Serious: Yes (Hospitalization)
  Sender: FDA-Public Use
  Company Number: HQWYE760116NOV06

PATIENT
  Sex: Male

DRUGS (13)
  1. ENBREL [Suspect]
     Indication: RHEUMATOID ARTHRITIS
     Route: 058
     Dates: start: 20060803, end: 20060908
  2. BUCILLAMINE [Concomitant]
     Indication: RHEUMATOID ARTHRITIS
     Route: 048
     Dates: start: 20051125, end: 20060908
  3. PREDNISOLONE [Concomitant]
     Indication: RHEUMATOID ARTHRITIS
     Route: 048
  4. ETODOLAC [Concomitant]
     Indication: RHEUMATOID ARTHRITIS
     Route: 048
  5. BONALON [Concomitant]
     Route: 048
  6. METHYL SALICYLATE [Concomitant]
     Indication: RHEUMATOID ARTHRITIS
  7. VOLTAREN [Concomitant]
     Indication: RHEUMATOID ARTHRITIS
     Route: 048
  8. CYTOTEC [Concomitant]
     Route: 048
  9. SELBEX [Concomitant]
     Route: 048
  10. KETOPROFEN [Concomitant]
     Indication: RHEUMATOID ARTHRITIS
  11. FELBINAC [Concomitant]
     Indication: RHEUMATOID ARTHRITIS
  12. METHOTREXATE [Concomitant]
     Indication: RHEUMATOID ARTHRITIS
     Dosage: UNKNOWN
     Route: 048
     Dates: start: 20030502, end: 20060908
  13. FOLIAMIN [Concomitant]
     Route: 048

REACTIONS (2)
  - MEDIASTINAL ABSCESS [None]
  - NECK PAIN [None]
